FAERS Safety Report 20771471 (Version 2)
Quarter: 2022Q3

REPORT INFORMATION
  Report Type: Spontaneous
  Country: CH (occurrence: CH)
  Receive Date: 20220429
  Receipt Date: 20220804
  Transmission Date: 20221026
  Serious: Yes (Other)
  Sender: FDA-Public Use
  Company Number: SZ-STRIDES ARCOLAB LIMITED-2022SP004786

PATIENT
  Sex: Female

DRUGS (4)
  1. LAMIVUDINE [Suspect]
     Active Substance: LAMIVUDINE
     Indication: Product used for unknown indication
     Dosage: UNK
     Route: 064
  2. TENOFOVIR DISOPROXIL FUMARATE [Suspect]
     Active Substance: TENOFOVIR DISOPROXIL FUMARATE
     Indication: Product used for unknown indication
     Dosage: UNK
     Route: 064
  3. ZIDOVUDINE [Suspect]
     Active Substance: ZIDOVUDINE
     Indication: Product used for unknown indication
     Dosage: UNK
     Route: 064
  4. LOPINAVIR\RITONAVIR [Suspect]
     Active Substance: LOPINAVIR\RITONAVIR
     Indication: Product used for unknown indication
     Dosage: UNK
     Route: 064

REACTIONS (8)
  - Meningomyelocele [Unknown]
  - Arnold-Chiari malformation [Unknown]
  - Hyperbilirubinaemia [Unknown]
  - Necrotising colitis [Recovered/Resolved]
  - Macrocephaly [Unknown]
  - Foetal exposure during pregnancy [Unknown]
  - Premature baby [Unknown]
  - Neonatal respiratory distress syndrome [Unknown]
